FAERS Safety Report 8421323-5 (Version None)
Quarter: 2012Q2

REPORT INFORMATION
  Report Type: 
  Country: None (occurrence: None)
  Receive Date: 20120608
  Receipt Date: 20120601
  Transmission Date: 20120825
  Serious: Yes (Hospitalization, Other)
  Sender: FDA-Public Use
  Company Number: PHHY2011MX87352

PATIENT
  Sex: Female

DRUGS (2)
  1. MYFORTIC [Suspect]
     Dosage: 180 MG, 3 TABLETS
     Route: 048
  2. MYFORTIC [Suspect]
     Dosage: 360 MG, TID
     Route: 048

REACTIONS (5)
  - DIARRHOEA [None]
  - MUCOUS STOOLS [None]
  - GASTROINTESTINAL INJURY [None]
  - FAECES DISCOLOURED [None]
  - DEHYDRATION [None]
